FAERS Safety Report 25341027 (Version 1)
Quarter: 2025Q2

REPORT INFORMATION
  Report Type: Spontaneous
  Country: FR (occurrence: FR)
  Receive Date: 20250521
  Receipt Date: 20250521
  Transmission Date: 20250716
  Serious: Yes (Hospitalization)
  Sender: ACCORD
  Company Number: None

PATIENT
  Sex: Male
  Weight: 1.84 kg

DRUGS (12)
  1. MONTELUKAST SODIUM [Suspect]
     Active Substance: MONTELUKAST SODIUM
     Dates: start: 20240802, end: 20250314
  2. DESLORATADINE [Suspect]
     Active Substance: DESLORATADINE
     Dates: start: 20240802, end: 20250314
  3. VENTOLIN [Suspect]
     Active Substance: ALBUTEROL SULFATE
     Dates: start: 20240802, end: 20250314
  4. BENRALIZUMAB [Suspect]
     Active Substance: BENRALIZUMAB
     Dosage: STRENGTH: 30 MG
     Dates: start: 20240802, end: 202409
  5. FERROUS FUMARATE [Suspect]
     Active Substance: FERROUS FUMARATE
     Dosage: STRENGTH: 66 MG
     Dates: start: 20240802, end: 20250314
  6. FOLIC ACID [Suspect]
     Active Substance: FOLIC ACID
     Dates: start: 20240802, end: 20250314
  7. BECLOMETHASONE DIPROPIONATE\FORMOTEROL FUMARATE\GLYCOPYRROLATE [Suspect]
     Active Substance: BECLOMETHASONE DIPROPIONATE\FORMOTEROL FUMARATE\GLYCOPYRROLATE
     Dates: start: 20240802, end: 20250314
  8. PREDNISOLONE [Suspect]
     Active Substance: PREDNISOLONE
     Dates: start: 20250115, end: 20250120
  9. PREDNISOLONE [Suspect]
     Active Substance: PREDNISOLONE
     Indication: Asthma
     Dates: start: 20250303, end: 20250314
  10. PREDNISOLONE [Suspect]
     Active Substance: PREDNISOLONE
     Indication: Asthma
     Dates: start: 20250131, end: 20250205
  11. PREDNISOLONE [Suspect]
     Active Substance: PREDNISOLONE
     Indication: Asthma
     Dates: start: 20250210, end: 20250215
  12. PREDNISOLONE [Suspect]
     Active Substance: PREDNISOLONE
     Indication: Asthma
     Dates: start: 20250216, end: 20250303

REACTIONS (5)
  - Foetal growth restriction [Recovered/Resolved]
  - Premature baby [Recovered/Resolved]
  - Caput succedaneum [Recovered/Resolved]
  - Jaundice neonatal [Recovered/Resolved]
  - Foetal exposure during pregnancy [Recovered/Resolved]

NARRATIVE: CASE EVENT DATE: 20250314
